FAERS Safety Report 19804603 (Version 3)
Quarter: 2021Q3

REPORT INFORMATION
  Report Type: Report from Study
  Country: US (occurrence: US)
  Receive Date: 20210908
  Receipt Date: 20210927
  Transmission Date: 20211014
  Serious: Yes (Death, Hospitalization)
  Sender: FDA-Public Use
  Company Number: US-EISAI MEDICAL RESEARCH-EC-2021-097119

PATIENT
  Age: 54 Year
  Sex: Female

DRUGS (3)
  1. LENVATINIB [Suspect]
     Active Substance: LENVATINIB
     Dosage: UNKNOWN FREQUENCY
     Route: 048
     Dates: start: 20210811
  2. LENVATINIB [Suspect]
     Active Substance: LENVATINIB
     Indication: UTERINE LEIOMYOSARCOMA
     Dosage: UNKNOWN FREQUENCY
     Route: 048
     Dates: start: 20210716, end: 20210722
  3. PEMBROLIZUMAB. [Suspect]
     Active Substance: PEMBROLIZUMAB
     Indication: LEIOMYOSARCOMA METASTATIC
     Dosage: UNKNOWN DOSE AND FREQUENCY
     Route: 041
     Dates: start: 20210819, end: 20210819

REACTIONS (4)
  - Pneumonia [Unknown]
  - Death [Fatal]
  - Dyspnoea [Unknown]
  - Cough [Unknown]

NARRATIVE: CASE EVENT DATE: 20210726
